FAERS Safety Report 21113073 (Version 1)
Quarter: 2022Q3

REPORT INFORMATION
  Report Type: Report from Study
  Country: US (occurrence: US)
  Receive Date: 20220721
  Receipt Date: 20220721
  Transmission Date: 20221026
  Serious: Yes (Death)
  Sender: FDA-Public Use
  Company Number: US-OTSUKA-2022_037132

PATIENT
  Sex: Female

DRUGS (1)
  1. BREXPIPRAZOLE [Suspect]
     Active Substance: BREXPIPRAZOLE
     Indication: Dementia
     Dosage: 1 MG, QD
     Route: 065
     Dates: start: 202202

REACTIONS (2)
  - Death [Fatal]
  - Product use in unapproved indication [Unknown]
